FAERS Safety Report 9996727 (Version 1)
Quarter: 2014Q1

REPORT INFORMATION
  Report Type: Spontaneous
  Country: US (occurrence: US)
  Receive Date: 20140311
  Receipt Date: 20140311
  Transmission Date: 20141002
  Serious: No
  Sender: FDA-Public Use
  Company Number: US-GLAXOSMITHKLINE-A1018676A

PATIENT
  Age: 74 Year
  Sex: Female

DRUGS (2)
  1. NICORETTE OTC 4MG [Suspect]
     Indication: EX-TOBACCO USER
     Dates: end: 20130403
  2. NICORETTE OTC, UNSPECIFIED [Suspect]
     Indication: EX-TOBACCO USER

REACTIONS (10)
  - Rash [Not Recovered/Not Resolved]
  - Rash erythematous [Not Recovered/Not Resolved]
  - Genital rash [Not Recovered/Not Resolved]
  - Erythema [Not Recovered/Not Resolved]
  - Anorectal discomfort [Not Recovered/Not Resolved]
  - Anorectal discomfort [Not Recovered/Not Resolved]
  - Vulvovaginal burning sensation [Not Recovered/Not Resolved]
  - Fungal infection [Not Recovered/Not Resolved]
  - Hypersensitivity [Not Recovered/Not Resolved]
  - Drug ineffective [Unknown]
